FAERS Safety Report 5026058-7 (Version None)
Quarter: 2006Q2

REPORT INFORMATION
  Report Type: 
  Country: None (occurrence: None)
  Receive Date: 20060608
  Receipt Date: 20060522
  Transmission Date: 20061013
  Serious: Yes (Life-Threatening, Hospitalization)
  Sender: FDA-Public Use
  Company Number: PHBS2006IN07741

PATIENT
  Age: 18 Year
  Sex: Female

DRUGS (2)
  1. CARBAMAZEPINE [Suspect]
     Indication: BIPOLAR DISORDER
     Dosage: 100 MG, TID,
  2. CHLORPROMAZINE [Suspect]
     Indication: BIPOLAR DISORDER
     Dosage: 100 MG, BID,

REACTIONS (18)
  - AFFECTIVE DISORDER [None]
  - BLOOD PRESSURE INCREASED [None]
  - COMA [None]
  - DERMATITIS BULLOUS [None]
  - EOSINOPHILIA [None]
  - GLYCOSURIA [None]
  - HYPERGLYCAEMIA [None]
  - LEUKOCYTOSIS [None]
  - NEUROLEPTIC MALIGNANT SYNDROME [None]
  - POLYURIA [None]
  - SALIVARY HYPERSECRETION [None]
  - SKIN EXFOLIATION [None]
  - SKIN LESION [None]
  - STAPHYLOCOCCAL INFECTION [None]
  - TACHYCARDIA [None]
  - TACHYPNOEA [None]
  - TOXIC EPIDERMAL NECROLYSIS [None]
  - URINARY INCONTINENCE [None]
